FAERS Safety Report 5010912-6 (Version None)
Quarter: 2006Q2

REPORT INFORMATION
  Report Type: 
  Country: None (occurrence: None)
  Receive Date: 20060523
  Receipt Date: 20060512
  Transmission Date: 20061013
  Serious: Yes (Hospitalization)
  Sender: FDA-Public Use
  Company Number: 225059

PATIENT
  Age: 57 Year
  Sex: Female

DRUGS (1)
  1. NUTROPIN AQ [Suspect]
     Indication: PITUITARY TUMOUR BENIGN
     Dosage: 0.2 MG SUBCUTANEOUS
     Route: 058
     Dates: start: 20050319

REACTIONS (2)
  - ENDOMETRIAL HYPERPLASIA [None]
  - POSTMENOPAUSAL HAEMORRHAGE [None]
